FAERS Safety Report 5246871-0 (Version None)
Quarter: 2007Q1

REPORT INFORMATION
  Report Type: 
  Country: None (occurrence: None)
  Receive Date: 20070226
  Receipt Date: 20070214
  Transmission Date: 20070707
  Serious: Yes (Other)
  Sender: FDA-Public Use
  Company Number: US-PFIZER INC-2007012919

PATIENT
  Sex: Female
  Weight: 59.9 kg

DRUGS (8)
  1. LYRICA [Suspect]
     Indication: NEURALGIA
     Route: 048
  2. THYROLAR [Concomitant]
  3. OGEN [Concomitant]
  4. SOLTUX [Concomitant]
  5. VICODIN [Concomitant]
  6. CENTRUM SILVER [Concomitant]
  7. COENZYME Q10 [Concomitant]
  8. VITAMIN E [Concomitant]

REACTIONS (5)
  - CYSTITIS [None]
  - DYSPNOEA [None]
  - EOSINOPHIL COUNT INCREASED [None]
  - RASH [None]
  - WEIGHT INCREASED [None]
